FAERS Safety Report 8606998-X (Version None)
Quarter: 2012Q3

REPORT INFORMATION
  Report Type: 
  Country: None (occurrence: None)
  Receive Date: 20120820
  Receipt Date: 20120809
  Transmission Date: 20120928
  Serious: Yes (Hospitalization)
  Sender: FDA-Public Use
  Company Number: IE-BAXTER-2012BAX014167

PATIENT
  Sex: Male

DRUGS (7)
  1. CELEBREX [Concomitant]
     Indication: PAIN
     Route: 048
  2. METRONIDAZOLE [Concomitant]
     Indication: INFECTION
     Route: 048
     Dates: start: 20120710
  3. OXYCONTIN [Concomitant]
     Indication: PAIN
     Route: 048
     Dates: start: 20120710
  4. SODIUM CHLORIDE 0.9% [Suspect]
     Dates: end: 20120802
  5. VANCOMYCIN [Suspect]
     Indication: INFECTION
     Route: 042
     Dates: end: 20120802
  6. OXYCODONE HYDROCHLORIDE [Concomitant]
     Indication: PAIN
     Route: 048
     Dates: start: 20120710
  7. LYRICA [Concomitant]
     Route: 048

REACTIONS (3)
  - MALAISE [None]
  - RASH [None]
  - PYREXIA [None]
